FAERS Safety Report 9981000 (Version 3)
Quarter: 2015Q4

REPORT INFORMATION
  Report Type: Report from Study
  Country: JP (occurrence: JP)
  Receive Date: 20140307
  Receipt Date: 20151228
  Transmission Date: 20160305
  Serious: Yes (Death, Other)
  Sender: FDA-Public Use
  Company Number: JP-009507513-2011SP058418

PATIENT
  Age: 55 Year
  Sex: Male
  Weight: 67 kg

DRUGS (12)
  1. LAXOBERON [Concomitant]
     Active Substance: SODIUM PICOSULFATE
     Indication: PROPHYLAXIS
     Dosage: DAILY DOSE UNKNOWN, FORMULATION: POR
     Route: 048
     Dates: start: 20070112, end: 20070130
  2. PRIMPERAN [Concomitant]
     Active Substance: METOCLOPRAMIDE HYDROCHLORIDE
     Indication: PROPHYLAXIS
     Dosage: DAILY DOSE UNKNOWN, FORMULATIO: POR
     Route: 048
     Dates: start: 20070115, end: 20070925
  3. PHENYTOIN. [Concomitant]
     Active Substance: PHENYTOIN
     Dosage: DAILY DOSE UNKNOWN
     Route: 048
     Dates: end: 20071113
  4. GASMOTIN [Concomitant]
     Active Substance: MOSAPRIDE CITRATE
     Dosage: DAILY DOSE UNKNOWN; FORMULATION:POR
     Route: 048
     Dates: end: 20070501
  5. TEMOZOLOMIDE. [Suspect]
     Active Substance: TEMOZOLOMIDE
     Dosage: 200 MG/M2 X 5 DAYS/28 DAYS, DAILY DOSE UNKNOWN
     Route: 048
     Dates: start: 20070209, end: 20071023
  6. MAGNESIUM OXIDE. [Concomitant]
     Active Substance: MAGNESIUM OXIDE
     Indication: PROPHYLAXIS
     Dosage: DAILY DOSE UNKNOWN, FORMULATION: POR
     Route: 048
     Dates: start: 20070319, end: 20071015
  7. NAUZELIN [Concomitant]
     Active Substance: DOMPERIDONE
     Dosage: DAILY DOSE UNKNOWN, FORMULATION: POR
     Route: 048
     Dates: end: 20070308
  8. DEPAS [Concomitant]
     Active Substance: ETIZOLAM
     Dosage: DAILY DOSE UNKNOWN, FORMULATION: POR
     Route: 048
     Dates: end: 20070905
  9. TEMOZOLOMIDE. [Suspect]
     Active Substance: TEMOZOLOMIDE
     Indication: GLIOMATOSIS CEREBRI
     Dosage: 150 MG/M2, QD (200MG/M2 X 5DAYS/28DAYS)
     Route: 048
     Dates: start: 20070110, end: 20070114
  10. NAVOBAN [Concomitant]
     Active Substance: TROPISETRON HYDROCHLORIDE
     Indication: PROPHYLAXIS
     Dosage: DAILY DOSE UNKNOWN
     Route: 048
     Dates: start: 20070110, end: 20071120
  11. DECADRON [Concomitant]
     Active Substance: DEXAMETHASONE
     Indication: PROPHYLAXIS
     Dosage: DAILY DOSE UNKNOWN
     Route: 048
     Dates: start: 20070115, end: 20070313
  12. TAURINE [Concomitant]
     Active Substance: TAURINE
     Dosage: DAILY DOSE UNKNOWN:FORMULATION: POR
     Route: 048
     Dates: end: 20070311

REACTIONS (10)
  - Eosinophil count increased [Recovered/Resolved]
  - White blood cell count decreased [Recovered/Resolved]
  - Monocyte count increased [Not Recovered/Not Resolved]
  - Bone marrow failure [Recovering/Resolving]
  - Malaise [Recovering/Resolving]
  - Nausea [Recovering/Resolving]
  - Disease progression [Fatal]
  - Hyperglycaemia [Recovered/Resolved]
  - Basophil count increased [Recovered/Resolved]
  - Constipation [Recovered/Resolved]

NARRATIVE: CASE EVENT DATE: 20070305
